FAERS Safety Report 5706048-9 (Version None)
Quarter: 2008Q2

REPORT INFORMATION
  Report Type: 
  Country: None (occurrence: None)
  Receive Date: 20080415
  Receipt Date: 20080407
  Transmission Date: 20081010
  Serious: Yes (Hospitalization)
  Sender: FDA-Public Use
  Company Number: US-KINGPHARMUSA00001-K200800401

PATIENT

DRUGS (8)
  1. ALTACE [Suspect]
     Dosage: 5 MG, QD
     Dates: end: 20071213
  2. SPIRONOLACTONE [Suspect]
     Dosage: 75 MG, QD
     Dates: start: 20061212, end: 20071213
  3. LOXEN CONTROLLED/ MODIFIED RELEASE [Concomitant]
     Dosage: 100 MG DAILY
     Route: 048
  4. PLAVIX [Concomitant]
     Dosage: 75 MG DAILY
     Route: 048
  5. SOTALOL HCL [Concomitant]
     Dosage: 160 MG DAILY
     Route: 048
  6. SIMVASTATIN [Concomitant]
     Dosage: 20 MG DAILY
     Route: 048
  7. ATROVENT [Concomitant]
     Dosage: 6 DF DAILY
  8. TRIMEBUTINE [Concomitant]
     Dosage: 300 MG, QD
     Route: 048

REACTIONS (8)
  - DRUG INTERACTION [None]
  - HYPERKALAEMIA [None]
  - HYPERTENSION [None]
  - MUSCULAR WEAKNESS [None]
  - MUSCULOSKELETAL PAIN [None]
  - PAIN IN EXTREMITY [None]
  - QUADRIPARESIS [None]
  - RENAL FAILURE ACUTE [None]
